FAERS Safety Report 21845550 (Version 1)
Quarter: 2023Q1

REPORT INFORMATION
  Report Type: Report from Study
  Country: US (occurrence: US)
  Receive Date: 20230111
  Receipt Date: 20230111
  Transmission Date: 20230418
  Serious: No
  Sender: FDA-Public Use
  Company Number: US-ABBVIE-4234408

PATIENT
  Sex: Male

DRUGS (2)
  1. DUOPA [Suspect]
     Active Substance: CARBIDOPA\LEVODOPA
     Indication: Product used for unknown indication
     Dosage: ADMINISTER CONTENTS OF ONE DUOPA CASSETTE VIA PEG-J FOR UP TO 16 HOURS EACH DAY. MORNING DOSE: 16...
     Route: 050
     Dates: start: 202107
  2. DUOPA [Suspect]
     Active Substance: CARBIDOPA\LEVODOPA

REACTIONS (2)
  - Burning sensation [Unknown]
  - Pollakiuria [Unknown]
